FAERS Safety Report 11028547 (Version 2)
Quarter: 2015Q2

REPORT INFORMATION
  Report Type: Spontaneous
  Country: US (occurrence: US)
  Receive Date: 20150414
  Receipt Date: 20150525
  Transmission Date: 20150821
  Serious: No
  Sender: FDA-Public Use
  Company Number: US-JNJFOC-20120516821

PATIENT
  Age: 19 Year
  Sex: Female
  Weight: 53.52 kg

DRUGS (3)
  1. ORTHO TRI CYCLEN LO [Suspect]
     Active Substance: ETHINYL ESTRADIOL\NORGESTIMATE
     Indication: OVARIAN CYST
     Dosage: ABOUT 2 YEARS AGO
     Route: 048
     Dates: start: 2010
  2. ORTHO TRI CYCLEN LO [Suspect]
     Active Substance: ETHINYL ESTRADIOL\NORGESTIMATE
     Indication: CONTRACEPTION
     Dosage: ABOUT 2 YEARS AGO
     Route: 048
     Dates: start: 2010
  3. ORTHO TRI CYCLEN LO [Suspect]
     Active Substance: ETHINYL ESTRADIOL\NORGESTIMATE
     Indication: MENORRHAGIA
     Dosage: ABOUT 2 YEARS AGO
     Route: 048
     Dates: start: 2010

REACTIONS (4)
  - Urinary tract infection [Unknown]
  - Pain [Not Recovered/Not Resolved]
  - Product use issue [Not Recovered/Not Resolved]
  - Ovulation pain [Recovered/Resolved]

NARRATIVE: CASE EVENT DATE: 2010
